FAERS Safety Report 6406531-7 (Version None)
Quarter: 2009Q4

REPORT INFORMATION
  Report Type: 
  Country: None (occurrence: None)
  Receive Date: 20091019
  Receipt Date: 20091009
  Transmission Date: 20100525
  Serious: Yes (Hospitalization, Other)
  Sender: FDA-Public Use
  Company Number: US-ABBOTT-09P-163-0602046-00

PATIENT
  Sex: Male
  Weight: 90.8 kg

DRUGS (1)
  1. HUMIRA [Suspect]
     Indication: CROHN'S DISEASE
     Route: 058
     Dates: start: 20050101

REACTIONS (5)
  - BLOOD POTASSIUM DECREASED [None]
  - CROHN'S DISEASE [None]
  - DIARRHOEA [None]
  - HEPATIC ENZYME INCREASED [None]
  - NERVOUSNESS [None]
